FAERS Safety Report 6941800-3 (Version None)
Quarter: 2010Q3

REPORT INFORMATION
  Report Type: 
  Country: None (occurrence: None)
  Receive Date: 20100826
  Receipt Date: 20100819
  Transmission Date: 20110219
  Serious: Yes (Hospitalization, Other)
  Sender: FDA-Public Use
  Company Number: CL-PFIZER INC-2010105775

PATIENT
  Age: 40 Year
  Sex: Female

DRUGS (2)
  1. CELEBRA [Suspect]
     Indication: MUSCLE RUPTURE
     Dosage: UNK
     Route: 048
     Dates: start: 20100408, end: 20100414
  2. TRAMADOL HYDROCHLORIDE AND ACETAMINOPHEN [Concomitant]
     Indication: MUSCLE RUPTURE
     Dosage: UNK
     Route: 048

REACTIONS (2)
  - HEPATITIS [None]
  - INFLAMMATION [None]
